FAERS Safety Report 20440254 (Version 2)
Quarter: 2022Q1

REPORT INFORMATION
  Report Type: Spontaneous
  Country: AU (occurrence: AU)
  Receive Date: 20220207
  Receipt Date: 20220302
  Transmission Date: 20220423
  Serious: Yes (Other)
  Sender: FDA-Public Use
  Company Number: AU-Teikoku Pharma USA-TPU2022-00135

PATIENT
  Age: 54 Year

DRUGS (1)
  1. LIDOCAINE [Suspect]
     Active Substance: LIDOCAINE
     Route: 061

REACTIONS (1)
  - Anaphylactic reaction [Unknown]
